FAERS Safety Report 4568193-3 (Version None)
Quarter: 2005Q1

REPORT INFORMATION
  Report Type: 
  Country: None (occurrence: None)
  Receive Date: 20050131
  Receipt Date: 20040914
  Transmission Date: 20050727
  Serious: Yes (Death)
  Sender: FDA-Public Use
  Company Number: MSTR-TC-0212C-0209

PATIENT
  Age: 31 Year
  Sex: Male
  Weight: 53 kg

DRUGS (20)
  1. METASTRON [Suspect]
     Indication: METASTATIC PAIN
     Dosage: 2.0 MBQ/KG, SINGLE DOSE, I.V.
     Route: 042
     Dates: start: 20021202, end: 20021202
  2. MORPHINE SULFATE [Concomitant]
  3. LOXOPROFEN SODIUM [Concomitant]
  4. DICLOFENAC SODIUM [Concomitant]
  5. MORPHINE HYDROCHLORIDE [Concomitant]
  6. MAINTENANCE MEDIUM 3 [Concomitant]
  7. PLAUNOTOL [Concomitant]
  8. FUROSEMIDE [Concomitant]
  9. ACETATED RINGER'S SOLUTION [Concomitant]
  10. FLURBIPROFEN AXETIL [Concomitant]
  11. VITAMIN B COMPLEX CAP [Concomitant]
  12. MIXED AMINO ACID/CARBOHYDRATE/ELECTROLYTE COMBINE [Concomitant]
  13. MANGANESE CHLORIDE [Concomitant]
  14. RANITIDINE HYDROCHLORIDE [Concomitant]
  15. SENNOSIDE [Concomitant]
  16. TRIAZOLAM [Concomitant]
  17. DIMETICONE [Concomitant]
  18. MAGNESIUM OXIDE [Concomitant]
  19. MULTIPLE VITAMIN FOR PARENTERAL NUTRITION 3 [Concomitant]
  20. ZINC SULFATE [Concomitant]

REACTIONS (16)
  - ABDOMINAL PAIN [None]
  - BODY TEMPERATURE INCREASED [None]
  - CEREBRAL HAEMORRHAGE [None]
  - DECREASED APPETITE [None]
  - DISORIENTATION [None]
  - DYSPNOEA [None]
  - EPISTAXIS [None]
  - HAEMOPTYSIS [None]
  - HEADACHE [None]
  - HEART RATE DECREASED [None]
  - HEART RATE INCREASED [None]
  - ORAL INTAKE REDUCED [None]
  - PAIN [None]
  - PLATELET COUNT DECREASED [None]
  - PULMONARY HAEMORRHAGE [None]
  - VOMITING [None]
